FAERS Safety Report 6086520-5 (Version None)
Quarter: 2009Q1

REPORT INFORMATION
  Report Type: 
  Country: None (occurrence: None)
  Receive Date: 20090223
  Receipt Date: 20090218
  Transmission Date: 20090719
  Serious: Yes (Other)
  Sender: FDA-Public Use
  Company Number: US-ASTRAZENECA-2009UW04573

PATIENT
  Age: 59 Year
  Sex: Female
  Weight: 80.3 kg

DRUGS (5)
  1. CRESTOR [Suspect]
     Route: 048
  2. WARFARIN SODIUM [Concomitant]
  3. GLUMETZA [Concomitant]
     Indication: BLOOD GLUCOSE
  4. MULTI-VITAMIN [Concomitant]
  5. PAIN PILL [Concomitant]
     Dosage: AT NIGHT

REACTIONS (8)
  - ARTHRALGIA [None]
  - GAIT DISTURBANCE [None]
  - JOINT SWELLING [None]
  - MEDICATION ERROR [None]
  - OEDEMA PERIPHERAL [None]
  - PAIN IN EXTREMITY [None]
  - PARAESTHESIA [None]
  - RESTLESS LEGS SYNDROME [None]
